FAERS Safety Report 25444628 (Version 2)
Quarter: 2025Q3

REPORT INFORMATION
  Report Type: Spontaneous
  Country: US (occurrence: US)
  Receive Date: 20250617
  Receipt Date: 20250721
  Transmission Date: 20251021
  Serious: No
  Sender: Kenvue
  Company Number: US-KENVUE-20250510409

PATIENT
  Age: 78 Year
  Sex: Male

DRUGS (10)
  1. ZYRTEC [Suspect]
     Active Substance: CETIRIZINE HYDROCHLORIDE
     Indication: Surgery
     Dosage: 1 DOSAGE FORM, ONCE A DAY
     Route: 048
     Dates: start: 20240528, end: 20250511
  2. ZYRTEC [Suspect]
     Active Substance: CETIRIZINE HYDROCHLORIDE
     Dosage: 1 DOSAGE FORM, ONCE A DAY
     Route: 048
  3. ZYRTEC [Suspect]
     Active Substance: CETIRIZINE HYDROCHLORIDE
     Dosage: 1 DOSAGE FORM, ONCE A DAY
     Route: 048
  4. ASPIRIN [Concomitant]
     Active Substance: ASPIRIN
     Indication: Cardiac disorder
     Route: 065
     Dates: start: 201906
  5. ATENOLOL [Concomitant]
     Active Substance: ATENOLOL
     Indication: Cardiac disorder
     Route: 065
     Dates: start: 201906
  6. EZETIMIBE [Concomitant]
     Active Substance: EZETIMIBE
     Indication: Cardiac disorder
     Route: 065
     Dates: start: 201906
  7. FUROSEMIDE [Concomitant]
     Active Substance: FUROSEMIDE
     Indication: Cardiac disorder
     Route: 065
     Dates: start: 201906
  8. DOXYCYCLINE [Concomitant]
     Active Substance: DOXYCYCLINE
     Indication: Cardiac disorder
     Route: 065
  9. ROSUVASTATIN [Concomitant]
     Active Substance: ROSUVASTATIN
     Indication: Product used for unknown indication
     Route: 065
  10. SERTRALINE [Concomitant]
     Active Substance: SERTRALINE HYDROCHLORIDE
     Indication: Product used for unknown indication
     Route: 065

REACTIONS (2)
  - Pruritus [Recovered/Resolved]
  - Off label use [Unknown]

NARRATIVE: CASE EVENT DATE: 20240528
